FAERS Safety Report 14330757 (Version 1)
Quarter: 2017Q4

REPORT INFORMATION
  Report Type: Report from Study
  Country: BE (occurrence: BE)
  Receive Date: 20171228
  Receipt Date: 20171228
  Transmission Date: 20180321
  Serious: Yes (Other)
  Sender: FDA-Public Use
  Company Number: BE-ROCHE-2045040

PATIENT
  Age: 76 Year
  Sex: Male

DRUGS (1)
  1. GAZYVARO [Suspect]
     Active Substance: OBINUTUZUMAB
     Indication: CHRONIC LYMPHOCYTIC LEUKAEMIA
     Route: 042
     Dates: start: 20160315, end: 20170802

REACTIONS (1)
  - Campylobacter gastroenteritis [Recovered/Resolved]

NARRATIVE: CASE EVENT DATE: 20160818
